APPROVED DRUG PRODUCT: MECLOFENAMATE SODIUM
Active Ingredient: MECLOFENAMATE SODIUM
Strength: EQ 100MG BASE
Dosage Form/Route: CAPSULE;ORAL
Application: A070401 | Product #001
Applicant: WATSON LABORATORIES INC
Approved: Nov 25, 1986 | RLD: No | RS: No | Type: DISCN